FAERS Safety Report 24391115 (Version 1)
Quarter: 2024Q4

REPORT INFORMATION
  Report Type: Spontaneous
  Country: US (occurrence: None)
  Receive Date: 20241002
  Receipt Date: 20241002
  Transmission Date: 20250115
  Serious: Yes (Hospitalization)
  Sender: Public
  Company Number: None

PATIENT
  Age: 40 Year
  Sex: Female

DRUGS (1)
  1. CAPECITABINE [Suspect]
     Active Substance: CAPECITABINE
     Indication: Pancreatic carcinoma
     Dosage: OTHER QUANTITY : 1000;?FREQUENCY : TWICE A DAY;?

REACTIONS (6)
  - Fatigue [None]
  - Vomiting [None]
  - Palmar-plantar erythrodysaesthesia syndrome [None]
  - Lacrimation decreased [None]
  - Burning sensation [None]
  - Ocular hyperaemia [None]
